FAERS Safety Report 17221797 (Version 2)
Quarter: 2020Q1

REPORT INFORMATION
  Report Type: Spontaneous
  Country: JP (occurrence: JP)
  Receive Date: 20200101
  Receipt Date: 20200211
  Transmission Date: 20200409
  Serious: Yes (Hospitalization, Other)
  Sender: FDA-Public Use
  Company Number: JP-AMGEN-JPNSP2019216291

PATIENT
  Age: 88 Year
  Sex: Female

DRUGS (9)
  1. EVENITY [Suspect]
     Active Substance: ROMOSOZUMAB-AQQG
     Indication: OSTEOPOROSIS
     Dosage: 210 MILLIGRAM, QMO
     Route: 058
     Dates: start: 20190918, end: 20191120
  2. LOXOPROFEN NA [Concomitant]
     Active Substance: LOXOPROFEN SODIUM
     Indication: BACK PAIN
     Dosage: 100 MILLIGRAM, 1 SHEET
     Dates: start: 20190911
  3. PRAVASTATINA [PRAVASTATIN SODIUM] [Concomitant]
     Indication: HYPERLIPIDAEMIA
     Dosage: 10 MILLIGRAM,, 1 TABLET ONCE DAILY
     Dates: start: 20120720
  4. LYRICA [Concomitant]
     Active Substance: PREGABALIN
     Indication: NEURALGIA
     Dosage: 25 MILLIGRAM, 2 CAPSULE TWICE DAILY
     Dates: start: 20191016
  5. AMLODIPINE;IRBESARTAN [Concomitant]
     Indication: HYPERTENSION
     Dosage: 5 MG 1 TABLET ONCE DAILY
     Dates: start: 20191113
  6. TRICHLORMETHIAZIDE [Concomitant]
     Active Substance: TRICHLORMETHIAZIDE
     Indication: HYPERTENSION
     Dosage: 1 MG, 1 TABLET ONCE DAILY
     Dates: start: 20191122
  7. LOXOPROFEN SODIUM DIHYDRATE [Concomitant]
     Active Substance: LOXOPROFEN SODIUM DIHYDRATE
     Indication: BACK PAIN
     Dosage: 60 MILLIGRAM
     Dates: start: 20190904
  8. LIMAPROST ALFADEX [Concomitant]
     Active Substance: LIMAPROST
     Indication: LUMBAR SPINAL STENOSIS
     Dosage: 5 MICROGRAM,, 1 TABLET THRICE DAILY
     Dates: start: 20190904
  9. EDIROL [Concomitant]
     Active Substance: ELDECALCITOL
     Indication: OSTEOPOROSIS
     Dosage: 0.75 MICROGRAM, 1 CAPSULE ONCE DAILY QD
     Dates: start: 20120427

REACTIONS (1)
  - Subperiosteal abscess [Recovering/Resolving]

NARRATIVE: CASE EVENT DATE: 20191120
